FAERS Safety Report 16075074 (Version 2)
Quarter: 2019Q4

REPORT INFORMATION
  Report Type: Report from Study
  Country: CA (occurrence: CA)
  Receive Date: 20190315
  Receipt Date: 20191127
  Transmission Date: 20200122
  Serious: Yes (Other)
  Sender: FDA-Public Use
  Company Number: CA-ROCHE-2283660

PATIENT
  Age: 49 Year
  Sex: Female
  Weight: 90.1 kg

DRUGS (5)
  1. BENADRYL [Concomitant]
     Active Substance: DIPHENHYDRAMINE HYDROCHLORIDE
     Indication: PREMEDICATION
     Dosage: ONGOING
     Route: 048
  2. TYLENOL [Concomitant]
     Active Substance: ACETAMINOPHEN
     Indication: PREMEDICATION
     Route: 048
  3. SOLU-MEDROL [Concomitant]
     Active Substance: METHYLPREDNISOLONE SODIUM SUCCINATE
     Indication: PREMEDICATION
     Route: 042
  4. RITUXAN [Suspect]
     Active Substance: RITUXIMAB
     Indication: RHEUMATOID ARTHRITIS
     Dosage: ONGOING
     Route: 041
     Dates: start: 20150316
  5. GRAVOL [Concomitant]
     Active Substance: DIMENHYDRINATE
     Indication: PREMEDICATION
     Route: 042

REACTIONS (7)
  - Abdominal pain [Unknown]
  - Diarrhoea [Unknown]
  - Intestinal haemorrhage [Not Recovered/Not Resolved]
  - Rectal haemorrhage [Recovered/Resolved]
  - Weight increased [Unknown]
  - Gastrointestinal disorder [Unknown]
  - Vomiting [Unknown]

NARRATIVE: CASE EVENT DATE: 201905
